FAERS Safety Report 4918474-6 (Version None)
Quarter: 2006Q1

REPORT INFORMATION
  Report Type: 
  Country: None (occurrence: None)
  Receive Date: 20060214
  Receipt Date: 20060130
  Transmission Date: 20060701
  Serious: Yes (Death, Hospitalization)
  Sender: FDA-Public Use
  Company Number: FR200601005294

PATIENT
  Age: 35 Year
  Sex: Female

DRUGS (1)
  1. PROZAC [Suspect]
     Indication: DEPRESSION
     Dosage: 20 MG DAILY (1/D) ORAL
     Route: 048
     Dates: end: 19970101

REACTIONS (6)
  - COMPLETED SUICIDE [None]
  - DEPRESSION [None]
  - DRUG DEPENDENCE [None]
  - INTENTIONAL OVERDOSE [None]
  - MULTIPLE DRUG OVERDOSE INTENTIONAL [None]
  - SUICIDE ATTEMPT [None]
